FAERS Safety Report 12487003 (Version 1)
Quarter: 2016Q2

REPORT INFORMATION
  Report Type: Spontaneous
  Country: US (occurrence: None)
  Receive Date: 20160621
  Receipt Date: 20160621
  Transmission Date: 20160815
  Serious: No
  Sender: FDA-Public Use
  Company Number: None

PATIENT
  Age: 58 Year
  Sex: Female

DRUGS (2)
  1. ENBREL [Suspect]
     Active Substance: ETANERCEPT
     Route: 058
     Dates: start: 20131104
  2. METHOTREXATE TAB 2.5MG [Suspect]
     Active Substance: METHOTREXATE
     Route: 048
     Dates: start: 20150624

REACTIONS (2)
  - Skin burning sensation [None]
  - Heat illness [None]

NARRATIVE: CASE EVENT DATE: 20160620
